FAERS Safety Report 6075622-5 (Version None)
Quarter: 2009Q1

REPORT INFORMATION
  Report Type: 
  Country: None (occurrence: None)
  Receive Date: 20090212
  Receipt Date: 20090204
  Transmission Date: 20090719
  Serious: Yes (Death, Other)
  Sender: FDA-Public Use
  Company Number: US-PFIZER INC-2006112511

PATIENT
  Sex: Female
  Weight: 85 kg

DRUGS (1)
  1. BEXTRA [Suspect]
     Dates: start: 20030627, end: 20040301

REACTIONS (5)
  - AORTIC VALVE DISEASE [None]
  - ATRIOVENTRICULAR BLOCK SECOND DEGREE [None]
  - CARDIAC FAILURE [None]
  - CARDIAC MURMUR [None]
  - MITRAL VALVE DISEASE [None]
